FAERS Safety Report 5719108-3 (Version None)
Quarter: 2008Q2

REPORT INFORMATION
  Report Type: 
  Country: None (occurrence: None)
  Receive Date: 20080427
  Receipt Date: 20080410
  Transmission Date: 20081010
  Serious: Yes (Hospitalization, Other)
  Sender: FDA-Public Use
  Company Number: PHHY2008JP03858

PATIENT
  Age: 75 Year
  Sex: Male
  Weight: 59 kg

DRUGS (8)
  1. NEORAL [Suspect]
     Indication: PSORIASIS
     Dosage: 200 MG, QD
     Route: 048
     Dates: start: 20080304, end: 20080313
  2. ASPIRIN [Concomitant]
     Indication: ANGINA PECTORIS
     Dosage: 100 MG, UNK
     Route: 048
     Dates: start: 20080116
  3. TORSEMIDE [Concomitant]
     Indication: OEDEMA
     Dosage: 4 MG/DAY
     Route: 048
     Dates: start: 20080307, end: 20080313
  4. BASEN [Concomitant]
     Indication: DIABETES MELLITUS
     Dosage: 9 MG, UNK
     Route: 048
     Dates: start: 20070614
  5. MAINTATE [Concomitant]
     Indication: CARDIAC FAILURE CONGESTIVE
     Dosage: 0.25 MG, UNK
     Route: 048
     Dates: start: 20070724
  6. TANATRIL [Concomitant]
     Indication: HYPERTENSION
     Dosage: 5 MG, UNK
     Route: 048
     Dates: start: 20070724
  7. NIKORANMART [Concomitant]
     Indication: ANGINA PECTORIS
     Dosage: 15 MG, UNK
     Route: 048
     Dates: start: 20060116
  8. NITOROL [Concomitant]
     Indication: ANGINA PECTORIS
     Dosage: 1 DF, ONCE/SINGLE
     Dates: start: 20080313

REACTIONS (24)
  - ABDOMINAL PAIN [None]
  - ANGINA PECTORIS [None]
  - ANGIOEDEMA [None]
  - BLOOD CREATINE PHOSPHOKINASE INCREASED [None]
  - BLOOD LACTATE DEHYDROGENASE INCREASED [None]
  - BLOOD URIC ACID INCREASED [None]
  - C-REACTIVE PROTEIN INCREASED [None]
  - CARDIAC FAILURE [None]
  - HYPERTENSION [None]
  - LYMPHOCYTE PERCENTAGE DECREASED [None]
  - MALAISE [None]
  - MYOGLOBIN BLOOD INCREASED [None]
  - N-TERMINAL PROHORMONE BRAIN NATRIURETIC PEPTIDE [None]
  - NAUSEA [None]
  - NEUTROPHIL PERCENTAGE INCREASED [None]
  - OEDEMA [None]
  - PLEURAL EFFUSION [None]
  - PRURITUS [None]
  - PYREXIA [None]
  - RASH [None]
  - RHABDOMYOLYSIS [None]
  - TROPONIN T INCREASED [None]
  - VOMITING [None]
  - WHITE BLOOD CELL COUNT INCREASED [None]
